FAERS Safety Report 8669598 (Version 3)
Quarter: 2013Q2

REPORT INFORMATION
  Report Type: Spontaneous
  Country: NL (occurrence: None)
  Receive Date: 20120702
  Receipt Date: 20130607
  Transmission Date: 20140414
  Serious: Yes (Other)
  Sender: FDA-Public Use
  Company Number: US-2012-10764

PATIENT
  Age: 43 Year
  Sex: Male

DRUGS (4)
  1. TOLVAPTAN [Suspect]
     Indication: CONGENITAL CYSTIC KIDNEY DISEASE
     Route: 048
     Dates: start: 20111213, end: 20120615
  2. LISINOPRIL (LISINOPRIL) [Concomitant]
  3. AMLODIPINE [Concomitant]
  4. COLCHICINE [Concomitant]

REACTIONS (3)
  - TRANSAMINASES INCREASED [None]
  - ALANINE AMINOTRANSFERASE INCREASED [None]
  - ASPARTATE AMINOTRANSFERASE INCREASED [None]
